FAERS Safety Report 5747691-0 (Version None)
Quarter: 2008Q2

REPORT INFORMATION
  Report Type: 
  Country: None (occurrence: None)
  Receive Date: 20080523
  Receipt Date: 20080521
  Transmission Date: 20081010
  Serious: Yes (Death)
  Sender: FDA-Public Use
  Company Number: CH-WYE-G01575308

PATIENT

DRUGS (3)
  1. EFFEXOR [Suspect]
  2. DUSPATALIN [Suspect]
  3. CLOPINE [Suspect]

REACTIONS (1)
  - SUBILEUS [None]
